FAERS Safety Report 4514908-X (Version None)
Quarter: 2004Q4

REPORT INFORMATION
  Report Type: 
  Country: None (occurrence: None)
  Receive Date: 20041129
  Receipt Date: 20041129
  Transmission Date: 20050328
  Serious: Yes (Death)
  Sender: FDA-Public Use
  Company Number: None

PATIENT
  Age: 77 Year
  Sex: Male
  Weight: 87 kg

DRUGS (11)
  1. THALIDOMIDE  100MG [Suspect]
     Indication: PROSTATE CANCER
     Dosage: 100MG  QD ORAL
     Route: 048
     Dates: start: 20041022, end: 20041101
  2. IMATINIB  200MG [Suspect]
     Indication: PROSTATE CANCER
     Dosage: 200MG  QD ORAL
     Route: 048
     Dates: start: 20041022, end: 20041101
  3. ALPRAZOLAM [Concomitant]
  4. DEXAMETHASONE [Concomitant]
  5. DOCUSATE/SENNOSIDES [Concomitant]
  6. EPOETIN ALFA,RECOMB INJ [Concomitant]
  7. FENTANYL [Concomitant]
  8. FLUTICASONE SOLN,NASAL [Concomitant]
  9. MORPHINE TAB, IR [Concomitant]
  10. ONDANSETRON TAB [Concomitant]
  11. ONDANSETRON TAB [Concomitant]

REACTIONS (5)
  - ANOREXIA [None]
  - ASTHENIA [None]
  - DRUG INTOLERANCE [None]
  - FAILURE TO THRIVE [None]
  - GENERAL PHYSICAL HEALTH DETERIORATION [None]
